FAERS Safety Report 9633291 (Version 2)
Quarter: 2013Q4

REPORT INFORMATION
  Report Type: Spontaneous
  Country: SK (occurrence: SK)
  Receive Date: 20131021
  Receipt Date: 20131021
  Transmission Date: 20140711
  Serious: Yes (Other)
  Sender: FDA-Public Use
  Company Number: SK-ROCHE-1283477

PATIENT
  Sex: Male

DRUGS (1)
  1. ZELBORAF [Suspect]
     Indication: PRODUCT USED FOR UNKNOWN INDICATION
     Route: 048
     Dates: start: 20130606

REACTIONS (4)
  - Face oedema [Recovered/Resolved]
  - Skin toxicity [Recovered/Resolved]
  - Feeling abnormal [Not Recovered/Not Resolved]
  - Oedema [Not Recovered/Not Resolved]
